FAERS Safety Report 8450327-1 (Version None)
Quarter: 2012Q2

REPORT INFORMATION
  Report Type: 
  Country: None (occurrence: None)
  Receive Date: 20120620
  Receipt Date: 20120613
  Transmission Date: 20120825
  Serious: Yes (Other)
  Sender: FDA-Public Use
  Company Number: PHHY2012JP046727

PATIENT
  Age: 33 Year
  Sex: Female

DRUGS (5)
  1. NEORAL [Suspect]
     Indication: SYSTEMIC LUPUS ERYTHEMATOSUS
     Dosage: 100 MG, DAILY
     Route: 048
     Dates: start: 20110721, end: 20110726
  2. NEORAL [Suspect]
     Dosage: 150 MG, DAILY
     Route: 048
     Dates: start: 20110726
  3. PREDNISOLONE [Concomitant]
     Indication: SYSTEMIC LUPUS ERYTHEMATOSUS
     Dosage: 7.5 MG, UNK
  4. STEROIDS NOS [Concomitant]
  5. PREDNISOLONE [Concomitant]
     Dosage: 20 MG, UNK

REACTIONS (7)
  - SYSTEMIC LUPUS ERYTHEMATOSUS [None]
  - PREMATURE RUPTURE OF MEMBRANES [None]
  - HYPERTENSION [None]
  - DRUG ERUPTION [None]
  - RASH [None]
  - MATERNAL EXPOSURE DURING PREGNANCY [None]
  - PYREXIA [None]
